FAERS Safety Report 7350990-2 (Version None)
Quarter: 2011Q1

REPORT INFORMATION
  Report Type: 
  Country: None (occurrence: None)
  Receive Date: 20110314
  Receipt Date: 20110308
  Transmission Date: 20110831
  Serious: Yes (Hospitalization)
  Sender: FDA-Public Use
  Company Number: JP-PFIZER INC-2011049771

PATIENT
  Age: 55 Year
  Sex: Male

DRUGS (4)
  1. SULPERAZON [Suspect]
     Indication: PYREXIA
     Dosage: 1 G, 2X/DAY
     Route: 041
     Dates: start: 20100925, end: 20100926
  2. PRIMPERAN TAB [Concomitant]
     Dosage: UNK
  3. LACTEC [Concomitant]
     Dosage: UNK
  4. ACTIT [Concomitant]
     Dosage: UNK

REACTIONS (2)
  - RASH GENERALISED [None]
  - CONJUNCTIVAL HYPERAEMIA [None]
